FAERS Safety Report 10270143 (Version 2)
Quarter: 2017Q3

REPORT INFORMATION
  Report Type: Spontaneous
  Country: FI (occurrence: FI)
  Receive Date: 20140701
  Receipt Date: 20170711
  Transmission Date: 20171127
  Serious: Yes (Disabling)
  Sender: FDA-Public Use
  Company Number: FI-TEVA-490332ISR

PATIENT
  Age: 19 Year
  Sex: Male

DRUGS (3)
  1. SERTRALIN RATIOPHARM 50 MG [Suspect]
     Active Substance: SERTRALINE HYDROCHLORIDE
     Indication: SOCIAL FEAR
     Dosage: 50 MILLIGRAM DAILY;
     Route: 048
     Dates: start: 20130813, end: 20131012
  2. CIPRALEX [Suspect]
     Active Substance: ESCITALOPRAM OXALATE
     Indication: SOCIAL FEAR
     Dosage: 10 MILLIGRAM DAILY;
     Route: 048
     Dates: start: 20111104, end: 20130427
  3. CIPRALEX [Suspect]
     Active Substance: ESCITALOPRAM OXALATE
     Indication: PANIC DISORDER

REACTIONS (6)
  - Depressed mood [Recovered/Resolved with Sequelae]
  - Libido decreased [Recovered/Resolved with Sequelae]
  - Male orgasmic disorder [Recovered/Resolved with Sequelae]
  - Disturbance in sexual arousal [Recovered/Resolved with Sequelae]
  - Genital paraesthesia [Recovered/Resolved with Sequelae]
  - Anxiety [Recovered/Resolved with Sequelae]
